FAERS Safety Report 4588114-7 (Version None)
Quarter: 2005Q1

REPORT INFORMATION
  Report Type: 
  Country: None (occurrence: None)
  Receive Date: 20050216
  Receipt Date: 20050202
  Transmission Date: 20050727
  Serious: Yes (Hospitalization)
  Sender: FDA-Public Use
  Company Number: EWC050242529

PATIENT
  Age: 75 Year
  Sex: Female

DRUGS (6)
  1. EVISTA [Suspect]
     Indication: OSTEOPOROSIS
     Dosage: 60 MG/1 DAY
     Dates: start: 20040224, end: 20041101
  2. METHOTREXATE          (METHOTREXATE FARMOS) [Concomitant]
  3. DOLMINA        (DICLOFENAC SODIUM) [Concomitant]
  4. PREDNISON           (PREDNISONE) [Concomitant]
  5. VIGANTOL        (COLECALCIFEROL) [Concomitant]
  6. VITACALCIN         (CALCIUM CARBONATE) [Concomitant]

REACTIONS (3)
  - FEELING COLD [None]
  - PAIN IN EXTREMITY [None]
  - SUBCLAVIAN ARTERY THROMBOSIS [None]
